FAERS Safety Report 10417288 (Version 2)
Quarter: 2014Q3

REPORT INFORMATION
  Report Type: Spontaneous
  Country: US (occurrence: US)
  Receive Date: 20140828
  Receipt Date: 20140911
  Transmission Date: 20150326
  Serious: Yes (Hospitalization)
  Sender: FDA-Public Use
  Company Number: US-B.I. PHARMACEUTICALS,INC./RIDGEFIELD-2014-BI-39213BP

PATIENT
  Age: 25 Year
  Sex: Female
  Weight: 62.6 kg

DRUGS (8)
  1. DULCOLAX [Suspect]
     Active Substance: BISACODYL OR DOCUSATE SODIUM
     Dosage: 4 TO 5 DULCOLAX LAXATIVE TABLETS EVERY 2 DAYS
     Route: 048
     Dates: start: 201406
  2. PREDNISONE. [Concomitant]
     Active Substance: PREDNISONE
     Indication: RENAL TRANSPLANT
     Dosage: 5 MG
     Route: 048
     Dates: start: 2000
  3. PROGRAF [Concomitant]
     Active Substance: TACROLIMUS\TACROLIMUS ANHYDROUS
     Indication: RENAL TRANSPLANT
     Route: 048
     Dates: start: 2000
  4. RISPERIDONE. [Concomitant]
     Active Substance: RISPERIDONE
     Indication: BULIMIA NERVOSA
     Route: 048
     Dates: start: 2013
  5. TACROLIMUS. [Concomitant]
     Active Substance: TACROLIMUS
     Indication: RENAL TRANSPLANT
     Dosage: 2 MG
     Route: 048
  6. DULCOLAX [Suspect]
     Active Substance: BISACODYL OR DOCUSATE SODIUM
     Dosage: 4 TO 5 DULCOLAX LAXATIVE TABLETS EVERY 2 DAYS
     Route: 048
     Dates: start: 201308
  7. DULCOLAX [Suspect]
     Active Substance: BISACODYL OR DOCUSATE SODIUM
     Route: 048
     Dates: start: 2013
  8. DULCOLAX [Suspect]
     Active Substance: BISACODYL OR DOCUSATE SODIUM
     Indication: CONSTIPATION
     Dosage: 7 TO 8 DULCOLAX LAXATIVE TABLETS DAILY
     Route: 048
     Dates: start: 2013, end: 201308

REACTIONS (5)
  - Drug ineffective [Not Recovered/Not Resolved]
  - Overdose [Recovered/Resolved]
  - Overdose [Recovered/Resolved]
  - Decreased appetite [Unknown]
  - Overdose [Not Recovered/Not Resolved]

NARRATIVE: CASE EVENT DATE: 2013
